FAERS Safety Report 11024113 (Version 11)
Quarter: 2022Q4

REPORT INFORMATION
  Report Type: Report from Study
  Country: CA (occurrence: CA)
  Receive Date: 20150413
  Receipt Date: 20221025
  Transmission Date: 20230113
  Serious: Yes (Other)
  Sender: FDA-Public Use
  Company Number: PHHY2014CA064714

PATIENT
  Age: 68 Year
  Sex: Male

DRUGS (11)
  1. SANDOSTATIN [Suspect]
     Active Substance: OCTREOTIDE ACETATE
     Indication: Neuroendocrine carcinoma
     Dosage: 100 UG, QD
     Route: 058
     Dates: start: 20140516, end: 20140516
  2. SANDOSTATIN [Suspect]
     Active Substance: OCTREOTIDE ACETATE
     Dosage: 100 UG, ONCE/SINGLE (TEST DOSE)
     Route: 058
     Dates: start: 20140526
  3. SANDOSTATIN [Suspect]
     Active Substance: OCTREOTIDE ACETATE
  4. SANDOSTATIN LAR DEPOT [Suspect]
     Active Substance: OCTREOTIDE ACETATE
     Indication: Neuroendocrine carcinoma
     Dosage: 30 MG, Q4W (EVERY 4 WEEKS)
     Route: 030
     Dates: start: 20140526
  5. SANDOSTATIN LAR DEPOT [Suspect]
     Active Substance: OCTREOTIDE ACETATE
  6. SANDOSTATIN LAR DEPOT [Suspect]
     Active Substance: OCTREOTIDE ACETATE
  7. ALFUZOSIN [Concomitant]
     Active Substance: ALFUZOSIN
     Indication: Product used for unknown indication
     Dosage: UNK (10)
     Route: 048
  8. NIFEDIPINE [Concomitant]
     Active Substance: NIFEDIPINE
     Indication: Product used for unknown indication
     Dosage: UNK, PRN (1)
     Route: 048
  9. FLUZONE [Concomitant]
     Active Substance: INFLUENZA A VIRUS A/CALIFORNIA/7/2009 X-179A (H1N1) ANTIGEN (FORMALDEHYDE INACTIVATED)\INFLUENZA A V
     Indication: Product used for unknown indication
     Dosage: UNK
     Route: 030
  10. AURO ALFUZOSIN [Concomitant]
     Indication: Product used for unknown indication
     Dosage: UNK
     Route: 065
  11. JAMP PREGABALIN [Concomitant]
     Indication: Product used for unknown indication
     Dosage: UNK, BID (1)
     Route: 048

REACTIONS (18)
  - Basal cell carcinoma [Unknown]
  - Second primary malignancy [Unknown]
  - Metastases to spine [Unknown]
  - Energy increased [Unknown]
  - Arthropathy [Recovered/Resolved]
  - Dry skin [Unknown]
  - Skin warm [Unknown]
  - Tinnitus [Recovered/Resolved]
  - Tinnitus [Recovered/Resolved]
  - Body temperature decreased [Unknown]
  - Contusion [Unknown]
  - Blood pressure increased [Unknown]
  - Blood pressure systolic increased [Unknown]
  - Biliary colic [Recovered/Resolved]
  - Constipation [Recovered/Resolved]
  - Diarrhoea [Recovered/Resolved]
  - Nausea [Recovered/Resolved]
  - Diarrhoea [Unknown]

NARRATIVE: CASE EVENT DATE: 20140101
